FAERS Safety Report 7685754-3 (Version None)
Quarter: 2011Q3

REPORT INFORMATION
  Report Type: 
  Country: None (occurrence: None)
  Receive Date: 20110815
  Receipt Date: 20110815
  Transmission Date: 20111222
  Serious: Yes (Other)
  Sender: FDA-Public Use
  Company Number: None

PATIENT
  Sex: Female
  Weight: 616.88 kg

DRUGS (14)
  1. ENTOCORT EC [Concomitant]
     Route: 048
  2. LEVOFLOXACIN [Concomitant]
     Route: 048
  3. VALTREX [Concomitant]
     Route: 048
  4. POTASSIUM CHLORIDE ER [Concomitant]
  5. RESTASIS [Suspect]
     Indication: PROPHYLAXIS AGAINST GRAFT VERSUS HOST DISEASE
     Dosage: 1GTT EACH EYE
     Route: 047
  6. CYCLOSPORINE [Concomitant]
  7. METOPROLOL TARTRATE [Concomitant]
     Route: 048
  8. PROCHLORPERAZINE [Concomitant]
     Route: 048
  9. DIFLUCAN [Concomitant]
     Route: 048
  10. BECLAMETHASONE ORAL SOLUTION [Concomitant]
  11. PENTAMADINE [Concomitant]
  12. MYCOPHENOLATE MOFETIL [Concomitant]
  13. ESOMEPRAZOLE MAGNESIUM [Concomitant]
  14. MG-PLUS-PROTEIN [Concomitant]
     Route: 048

REACTIONS (2)
  - MYELODYSPLASTIC SYNDROME [None]
  - DISEASE RECURRENCE [None]
